FAERS Safety Report 25647884 (Version 1)
Quarter: 2025Q3

REPORT INFORMATION
  Report Type: Report from Study
  Country: US (occurrence: US)
  Receive Date: 20250806
  Receipt Date: 20250806
  Transmission Date: 20251021
  Serious: No
  Sender: SUNOVION
  Company Number: US-SUMITOMO PHARMA SWITZERLAND GMBH-2025SPA006686

PATIENT
  Age: 84 Year
  Sex: Male

DRUGS (10)
  1. ORGOVYX [Suspect]
     Active Substance: RELUGOLIX
     Indication: Prostate cancer
     Dosage: 360 MG, SINGLE
     Route: 048
     Dates: start: 20250506, end: 20250506
  2. ORGOVYX [Suspect]
     Active Substance: RELUGOLIX
     Dosage: 120 MG, QD
     Route: 048
     Dates: start: 20250507
  3. ASPIRIN [Concomitant]
     Active Substance: ASPIRIN
  4. CRESTOR [Concomitant]
     Active Substance: ROSUVASTATIN CALCIUM
  5. FLOMAX [Concomitant]
     Active Substance: TAMSULOSIN HYDROCHLORIDE
  6. MELATONIN [Concomitant]
     Active Substance: MELATONIN
  7. METOPROLOL TARTRATE [Concomitant]
     Active Substance: METOPROLOL TARTRATE
  8. VITAMINS [Concomitant]
     Active Substance: VITAMINS
  9. NITROSTAT [Concomitant]
     Active Substance: NITROGLYCERIN
     Route: 060
  10. ZOLOFT [Concomitant]
     Active Substance: SERTRALINE HYDROCHLORIDE

REACTIONS (6)
  - Somnolence [Unknown]
  - Chills [Unknown]
  - Tremor [Unknown]
  - Photosensitivity reaction [Unknown]
  - Balance disorder [Unknown]
  - Fatigue [Unknown]
